FAERS Safety Report 23924245 (Version 1)
Quarter: 2024Q2

REPORT INFORMATION
  Report Type: Spontaneous
  Country: US (occurrence: US)
  Receive Date: 20240531
  Receipt Date: 20240531
  Transmission Date: 20240715
  Serious: Yes (Other)
  Sender: FDA-Public Use
  Company Number: US-STRIDES ARCOLAB LIMITED-2023SP009469

PATIENT
  Sex: Female
  Weight: 59 kg

DRUGS (3)
  1. VANCOMYCIN [Suspect]
     Active Substance: VANCOMYCIN
     Indication: Clostridium difficile colitis
     Dosage: 1 DOSAGE FORM, QID, CAPSULE
     Route: 048
     Dates: start: 202303
  2. VANCOMYCIN [Suspect]
     Active Substance: VANCOMYCIN
     Dosage: 125 MILLIGRAM, BID (1 CAPSULE TWICE A DAY FOR 7 DAYS, CAPSULE, NDC:47781-729-02)
     Route: 048
  3. SYNTHROID [Concomitant]
     Active Substance: LEVOTHYROXINE SODIUM
     Indication: Hypothyroidism
     Dosage: 100 MICROGRAM
     Route: 065

REACTIONS (1)
  - Drug ineffective [Unknown]
